FAERS Safety Report 17690082 (Version 1)
Quarter: 2020Q2

REPORT INFORMATION
  Report Type: Spontaneous
  Country: US (occurrence: US)
  Receive Date: 20200420
  Receipt Date: 20200420
  Transmission Date: 20200714
  Serious: Yes (Death)
  Sender: FDA-Public Use
  Company Number: None

PATIENT
  Age: 72 Year
  Sex: Male

DRUGS (1)
  1. H.P. ACTHAR [Suspect]
     Active Substance: CORTICOTROPIN
     Dosage: ?          OTHER FREQUENCY:UNKNOWN;?
     Route: 058
     Dates: end: 20200417

REACTIONS (2)
  - Choking [None]
  - Dysphagia [None]

NARRATIVE: CASE EVENT DATE: 20200417
